FAERS Safety Report 8018368-6 (Version None)
Quarter: 2012Q1

REPORT INFORMATION
  Report Type: 
  Country: None (occurrence: None)
  Receive Date: 20120103
  Receipt Date: 20111227
  Transmission Date: 20120608
  Serious: Yes (Other)
  Sender: FDA-Public Use
  Company Number: BR-PFIZER INC-2010150399

PATIENT
  Age: 32 Year
  Sex: Female
  Weight: 75 kg

DRUGS (4)
  1. AKINETON [Suspect]
     Dosage: UNK
  2. GEODON [Suspect]
     Dosage: 40 MG, 1X/DAY
     Route: 048
  3. GEODON [Suspect]
     Dosage: 80 MG, 1X/DAY
     Route: 048
  4. GEODON [Suspect]
     Indication: SCHIZOAFFECTIVE DISORDER
     Dosage: 40 MG, 1X/DAY
     Route: 048
     Dates: start: 20040101

REACTIONS (4)
  - DYSPHAGIA [None]
  - PARKINSON'S DISEASE [None]
  - TREMOR [None]
  - MALAISE [None]
